FAERS Safety Report 16526954 (Version 1)
Quarter: 2019Q3

REPORT INFORMATION
  Report Type: Spontaneous
  Country: AU (occurrence: AU)
  Receive Date: 20190703
  Receipt Date: 20190703
  Transmission Date: 20191004
  Serious: Yes (Death)
  Sender: FDA-Public Use
  Company Number: AU-JNJFOC-20190541129

PATIENT
  Age: 56 Year
  Sex: Male

DRUGS (4)
  1. FENTANYL UNSPECIFIED [Suspect]
     Active Substance: FENTANYL
     Indication: ANAESTHESIA
     Route: 065
     Dates: start: 201809
  2. ROCURONIUM BROMIDE. [Suspect]
     Active Substance: ROCURONIUM BROMIDE
     Indication: MUSCLE RELAXANT THERAPY
     Route: 065
     Dates: start: 201809
  3. PROPOFOL SANDOZ [Suspect]
     Active Substance: PROPOFOL
     Indication: ANAESTHESIA
     Route: 065
     Dates: start: 201809
  4. MIDAZOLAM [Suspect]
     Active Substance: MIDAZOLAM HYDROCHLORIDE
     Indication: ANAESTHESIA
     Route: 065
     Dates: start: 201809

REACTIONS (1)
  - Anaphylactic reaction [Fatal]
